FAERS Safety Report 15368374 (Version 1)
Quarter: 2018Q3

REPORT INFORMATION
  Report Type: Spontaneous
  Country: BE (occurrence: BE)
  Receive Date: 20180910
  Receipt Date: 20180910
  Transmission Date: 20181010
  Serious: Yes (Death, Congenital Anomaly)
  Sender: FDA-Public Use
  Company Number: BE-ALLERGAN-1844268US

PATIENT
  Weight: 1.55 kg

DRUGS (3)
  1. NEBIVOLOL HCL UNK [Suspect]
     Active Substance: NEBIVOLOL
     Indication: MATERNAL EXPOSURE TIMING UNSPECIFIED
     Dosage: 5 MG, UNK
     Route: 064
  2. BARNIDIPINE [Suspect]
     Active Substance: BARNIDIPINE
     Indication: MATERNAL EXPOSURE TIMING UNSPECIFIED
     Dosage: 10 MG, UNK
     Route: 064
  3. ACETYLSALICYLIC ACID [Suspect]
     Active Substance: ASPIRIN
     Indication: MATERNAL EXPOSURE TIMING UNSPECIFIED
     Dosage: 80 MG, UNK
     Route: 064

REACTIONS (3)
  - Trisomy 21 [Unknown]
  - Premature baby [Unknown]
  - Infection [Fatal]
